FAERS Safety Report 9964258 (Version 2)
Quarter: 2014Q1

REPORT INFORMATION
  Report Type: Spontaneous
  Country: US (occurrence: US)
  Receive Date: 20140305
  Receipt Date: 20140313
  Transmission Date: 20141002
  Serious: Yes (Death, Other)
  Sender: FDA-Public Use
  Company Number: US-BRISTOL-MYERS SQUIBB COMPANY-20324000

PATIENT
  Age: 63 Year
  Sex: Male

DRUGS (2)
  1. SUSTIVA [Suspect]
     Indication: HIV INFECTION
     Dosage: CAPS
     Route: 048
  2. ISENTRESS [Suspect]
     Route: 048

REACTIONS (1)
  - Cerebrovascular accident [Fatal]
